FAERS Safety Report 6044023-8 (Version None)
Quarter: 2009Q1

REPORT INFORMATION
  Report Type: 
  Country: None (occurrence: None)
  Receive Date: 20090120
  Receipt Date: 20090112
  Transmission Date: 20090719
  Serious: Yes (Other)
  Sender: FDA-Public Use
  Company Number: US-JNJFOC-20090102442

PATIENT
  Age: 52 Year
  Sex: Female
  Weight: 63.5 kg

DRUGS (3)
  1. TYLENOL WARMING COUGH + SORE THROAT NIGHTTIME HONEY LEMON [Suspect]
     Indication: INSOMNIA
     Route: 048
  2. TYLENOL WARMING COUGH + SORE THROAT NIGHTTIME HONEY LEMON [Suspect]
     Indication: OROPHARYNGEAL PAIN
     Route: 048
  3. TYLENOL WARMING COUGH + SORE THROAT NIGHTTIME HONEY LEMON [Suspect]
     Indication: COUGH
     Dosage: 1/3 TABLESPOON TWICE ON 2 SEPERATE DAYS
     Route: 048

REACTIONS (4)
  - ABDOMINAL DISCOMFORT [None]
  - DRY MOUTH [None]
  - EATING DISORDER [None]
  - THROAT TIGHTNESS [None]
